FAERS Safety Report 17629905 (Version 1)
Quarter: 2020Q2

REPORT INFORMATION
  Report Type: Spontaneous
  Country: US (occurrence: US)
  Receive Date: 20200402
  Receipt Date: 20200402
  Transmission Date: 20200713
  Serious: No
  Sender: FDA-Public Use
  Company Number: None

PATIENT
  Age: 46 Year
  Sex: Female

DRUGS (1)
  1. IBRANCE [Suspect]
     Active Substance: PALBOCICLIB
     Dosage: ?          STOP DATE OF THERAPY 04-03-20
     Route: 048
     Dates: start: 202001

REACTIONS (1)
  - Disease progression [None]

NARRATIVE: CASE EVENT DATE: 20200402
